FAERS Safety Report 21635734 (Version 1)
Quarter: 2022Q4

REPORT INFORMATION
  Report Type: Spontaneous
  Country: DE (occurrence: DE)
  Receive Date: 20221123
  Receipt Date: 20221123
  Transmission Date: 20230113
  Serious: Yes (Death, Other)
  Sender: FDA-Public Use
  Company Number: DE-JAZZ-2022-DE-036073

PATIENT
  Age: 28 Year
  Sex: Male

DRUGS (1)
  1. DEFITELIO [Suspect]
     Active Substance: DEFIBROTIDE SODIUM
     Indication: Product used for unknown indication

REACTIONS (5)
  - Septic shock [Fatal]
  - Acute graft versus host disease [Unknown]
  - Blood bilirubin increased [Unknown]
  - Rash [Unknown]
  - Diarrhoea [Unknown]
